FAERS Safety Report 25498618 (Version 1)
Quarter: 2025Q3

REPORT INFORMATION
  Report Type: Spontaneous
  Country: EU (occurrence: EU)
  Receive Date: 20250701
  Receipt Date: 20250701
  Transmission Date: 20251020
  Serious: Yes (Hospitalization, Other)
  Sender: AUROBINDO
  Company Number: EU-AFSSAPS-NY2025000818

PATIENT
  Age: 54 Year
  Sex: Male
  Weight: 72 kg

DRUGS (10)
  1. KETOPROFEN [Suspect]
     Active Substance: KETOPROFEN
     Indication: Back pain
     Dosage: 100 MILLIGRAM, 3 TIMES A DAY
     Route: 048
     Dates: start: 20250510, end: 20250512
  2. KETOPROFEN [Suspect]
     Active Substance: KETOPROFEN
     Dosage: 100 MILLIGRAM, 3 TIMES A DAY
     Route: 042
     Dates: start: 20250513, end: 20250513
  3. KETOPROFEN [Suspect]
     Active Substance: KETOPROFEN
     Dosage: 100 MILLIGRAM, 3 TIMES A DAY
     Route: 048
     Dates: start: 20250514, end: 20250517
  4. PREDNISOLONE [Suspect]
     Active Substance: PREDNISOLONE
     Indication: Back pain
     Dosage: 60 MILLIGRAM, ONCE A DAY
     Route: 048
     Dates: start: 20250511, end: 20250517
  5. NEFOPAM HYDROCHLORIDE [Concomitant]
     Active Substance: NEFOPAM HYDROCHLORIDE
     Indication: Back pain
     Dosage: 30 MILLIGRAM, ONCE A DAY
     Route: 048
     Dates: start: 20250511, end: 20250513
  6. TRAMADOL HYDROCHLORIDE [Concomitant]
     Active Substance: TRAMADOL HYDROCHLORIDE
     Indication: Back pain
     Dosage: 50 MILLIGRAM, ONCE A DAY
     Route: 048
     Dates: start: 20250511, end: 20250517
  7. VALIUM [Concomitant]
     Active Substance: DIAZEPAM
     Indication: Anxiety
     Dosage: 1 DOSAGE FORM, 3 TIMES A DAY
     Route: 048
     Dates: start: 20250511, end: 20250517
  8. SKENAN [Concomitant]
     Active Substance: MORPHINE SULFATE
     Indication: Back pain
     Dosage: 1 DOSAGE FORM, 3 TIMES A DAY
     Route: 048
     Dates: start: 20250511
  9. MORPHINE SULFATE [Concomitant]
     Active Substance: MORPHINE SULFATE
     Indication: Back pain
     Dosage: 1 DOSAGE FORM, ONCE A DAY
     Route: 048
     Dates: start: 20250511
  10. ACETAMINOPHEN [Concomitant]
     Active Substance: ACETAMINOPHEN
     Indication: Back pain
     Dosage: 1000 MILLIGRAM, 3 TIMES A DAY
     Route: 048
     Dates: start: 20250511

REACTIONS (2)
  - Intervertebral discitis [Recovering/Resolving]
  - Condition aggravated [Recovering/Resolving]

NARRATIVE: CASE EVENT DATE: 20250517
